FAERS Safety Report 9975714 (Version 1)
Quarter: 2014Q1

REPORT INFORMATION
  Report Type: Report from Study
  Country: US (occurrence: US)
  Receive Date: 20140306
  Receipt Date: 20140306
  Transmission Date: 20141002
  Serious: No
  Sender: FDA-Public Use
  Company Number: US-ABBVIE-13P-163-1155916-00

PATIENT
  Age: 57 Year
  Sex: Female

DRUGS (3)
  1. HUMIRA [Suspect]
     Indication: RHEUMATOID ARTHRITIS
     Dates: start: 20130806
  2. MELOXICAM [Suspect]
     Indication: ARTHRALGIA
     Dates: end: 20130930
  3. XYZAL [Concomitant]
     Indication: HYPERSENSITIVITY
     Dosage: AS NEEDED

REACTIONS (3)
  - Aphthous stomatitis [Unknown]
  - Nausea [Not Recovered/Not Resolved]
  - Dry mouth [Unknown]
